FAERS Safety Report 9351243 (Version 1)
Quarter: 2013Q2

REPORT INFORMATION
  Report Type: Spontaneous
  Country: US (occurrence: US)
  Receive Date: 20130617
  Receipt Date: 20130617
  Transmission Date: 20140414
  Serious: Yes (Hospitalization)
  Sender: FDA-Public Use
  Company Number: US-UCBSA-088406

PATIENT
  Age: 19 Year
  Sex: Female

DRUGS (6)
  1. LEVETIRACETAM [Suspect]
     Indication: STATUS EPILEPTICUS
     Dosage: UNKNOWN
  2. PHENYTOIN [Concomitant]
     Indication: STATUS EPILEPTICUS
  3. OXCARBAZEPINE [Concomitant]
     Indication: STATUS EPILEPTICUS
     Dosage: UNKNOWN
  4. PHENOBARBITAL [Concomitant]
     Indication: STATUS EPILEPTICUS
     Dosage: UNKNOWN
  5. RITUXIMAB [Concomitant]
     Dosage: UNKNOWN
  6. VALPROATE [Concomitant]
     Indication: STATUS EPILEPTICUS

REACTIONS (3)
  - Encephalitis [Unknown]
  - Acute respiratory failure [Unknown]
  - Pneumothorax [Unknown]
